FAERS Safety Report 25864859 (Version 1)
Quarter: 2025Q3

REPORT INFORMATION
  Report Type: Spontaneous
  Country: US (occurrence: US)
  Receive Date: 20250930
  Receipt Date: 20250930
  Transmission Date: 20251020
  Serious: No
  Sender: NOBELPHARMA
  Company Number: US-NPA-2025-AER-01616

PATIENT
  Sex: Female

DRUGS (1)
  1. HYFTOR [Suspect]
     Active Substance: SIROLIMUS
     Indication: Tuberous sclerosis complex
     Dates: start: 20250826

REACTIONS (2)
  - Dry skin [Unknown]
  - Product dose omission issue [Unknown]
